FAERS Safety Report 15448197 (Version 3)
Quarter: 2018Q4

REPORT INFORMATION
  Report Type: Spontaneous
  Country: JP (occurrence: JP)
  Receive Date: 20180928
  Receipt Date: 20181029
  Transmission Date: 20190204
  Serious: Yes (Hospitalization)
  Sender: FDA-Public Use
  Company Number: PHJP2018JP016972

PATIENT
  Age: 82 Year
  Sex: Female

DRUGS (6)
  1. COMTAN [Suspect]
     Active Substance: ENTACAPONE
     Indication: PARKINSON^S DISEASE
     Dosage: UNK
     Route: 048
  2. BI SIFROL [Concomitant]
     Active Substance: PRAMIPEXOLE
     Indication: PARKINSON^S DISEASE
     Dosage: UNK
     Route: 048
  3. FP [Concomitant]
     Active Substance: SELEGILINE HYDROCHLORIDE
     Indication: PARKINSON^S DISEASE
     Dosage: UNK
     Route: 048
  4. MENESIT [Concomitant]
     Active Substance: CARBIDOPA\LEVODOPA
     Indication: PARKINSON^S DISEASE
     Dosage: UNK
     Route: 048
  5. BI SIFROL [Concomitant]
     Active Substance: PRAMIPEXOLE
     Dosage: UNK
     Route: 065
  6. SYMMETREL [Concomitant]
     Active Substance: AMANTADINE HYDROCHLORIDE
     Indication: PARKINSON^S DISEASE
     Dosage: UNK
     Route: 065

REACTIONS (14)
  - Dysphonia [Unknown]
  - Parkinsonian gait [Unknown]
  - Parkinson^s disease [Unknown]
  - C-reactive protein increased [Unknown]
  - Lordosis [Unknown]
  - Gait disturbance [Unknown]
  - Bedridden [Unknown]
  - Decubitus ulcer [Unknown]
  - Therapeutic response shortened [Unknown]
  - Pyrexia [Unknown]
  - Neuroleptic malignant syndrome [Unknown]
  - Fall [Unknown]
  - Hypokinesia [Unknown]
  - Hallucination, visual [Recovered/Resolved]
